FAERS Safety Report 10516500 (Version 2)
Quarter: 2015Q1

REPORT INFORMATION
  Report Type: Report from Study
  Country: PL (occurrence: PL)
  Receive Date: 20141014
  Receipt Date: 20150106
  Transmission Date: 20150720
  Serious: Yes (Hospitalization)
  Sender: FDA-Public Use
  Company Number: PL-VERTEX PHARMACEUTICALS-2014-004210

PATIENT
  Age: 49 Year
  Sex: Female

DRUGS (3)
  1. PEGYLATED INTERFERON NOS [Suspect]
     Active Substance: PEGINTERFERON ALFA-2A OR PEGINTERFERON ALFA-2B OR PEGINTERFERON BETA-1A OR PEGINTERFERON LAMBDA-1A
     Indication: CHRONIC HEPATITIS C
     Dosage: DOSAGE FORM: UNSPECIFIED
     Route: 065
     Dates: start: 20140812, end: 20141009
  2. INCIVO [Suspect]
     Active Substance: TELAPREVIR
     Indication: CHRONIC HEPATITIS C
     Dosage: 2250 MG, UNK
     Route: 048
     Dates: start: 20140812, end: 20141009
  3. REBETOL [Suspect]
     Active Substance: RIBAVIRIN
     Indication: CHRONIC HEPATITIS C
     Dosage: DOSAGE FORM: UNSPECIFIED
     Route: 065
     Dates: start: 20140812, end: 20141009

REACTIONS (3)
  - Dermatitis allergic [Unknown]
  - Swelling [Unknown]
  - Rash macular [Unknown]

NARRATIVE: CASE EVENT DATE: 20140903
